FAERS Safety Report 20178521 (Version 1)
Quarter: 2021Q4

REPORT INFORMATION
  Report Type: Report from Study
  Country: JP (occurrence: JP)
  Receive Date: 20211214
  Receipt Date: 20211214
  Transmission Date: 20220303
  Serious: Yes (Hospitalization, Other)
  Sender: FDA-Public Use
  Company Number: JP-ABBVIE-17P-087-1839349-00

PATIENT
  Age: 65 Year
  Sex: Female
  Weight: 62 kg

DRUGS (23)
  1. CARBIDOPA\LEVODOPA [Suspect]
     Active Substance: CARBIDOPA\LEVODOPA
     Indication: Parkinson^s disease
     Dosage: MD: 3.0 ML, CD: 2.3 ML/HR X 6 HR
     Route: 050
     Dates: start: 20161207, end: 20161207
  2. CARBIDOPA\LEVODOPA [Suspect]
     Active Substance: CARBIDOPA\LEVODOPA
     Dosage: MD: 7.0 ML, CD: 2.5 ML/HR X 16 HR, ED: 1.0 ML/UNIT X1
     Route: 050
     Dates: start: 20161208, end: 20161208
  3. CARBIDOPA\LEVODOPA [Suspect]
     Active Substance: CARBIDOPA\LEVODOPA
     Dosage: MD: 7.0 ML, CD: 2.6 ML/HR X 16 HR
     Route: 050
     Dates: start: 20161209, end: 20161213
  4. CARBIDOPA\LEVODOPA [Suspect]
     Active Substance: CARBIDOPA\LEVODOPA
     Dosage: MD: 7.0 ML, CD: 2.7 ML/HR X 16 HR, ED: 1.0 ML/UNIT X1
     Route: 050
     Dates: start: 20161214, end: 20161218
  5. CARBIDOPA\LEVODOPA [Suspect]
     Active Substance: CARBIDOPA\LEVODOPA
     Dosage: MD: 7.0 ML, CD: 2.8 ML/HR X 16 HR, ED: 1.0 ML/UNIT X2
     Route: 050
     Dates: start: 20161219, end: 20161219
  6. CARBIDOPA\LEVODOPA [Suspect]
     Active Substance: CARBIDOPA\LEVODOPA
     Dosage: MD: 7.0 ML, CD: 3.0 ML/HR X 16 HR, ED: 1.4 ML/UNIT X2
     Route: 050
     Dates: start: 20161220, end: 20161222
  7. CARBIDOPA\LEVODOPA [Suspect]
     Active Substance: CARBIDOPA\LEVODOPA
     Dosage: MD: 7.0 ML, CD: 3.2 ML/HR X 18 HR, ED: 1.4 ML/UNIT X3
     Route: 050
     Dates: start: 20161223, end: 20161225
  8. CARBIDOPA\LEVODOPA [Suspect]
     Active Substance: CARBIDOPA\LEVODOPA
     Dosage: MD: 7.0 ML, CD: 3.4 ML/HR X 16 HR, ED: 1.6 ML/UNIT X3
     Route: 050
     Dates: start: 20161226, end: 20170301
  9. CARBIDOPA\LEVODOPA [Suspect]
     Active Substance: CARBIDOPA\LEVODOPA
     Dosage: MD: 7.0 ML, CD: 3.6 ML/HR X 16 HR, ED: 1.6 ML/UNIT X 3 TIMES
     Route: 050
     Dates: start: 20170302, end: 20170318
  10. CARBIDOPA\LEVODOPA [Suspect]
     Active Substance: CARBIDOPA\LEVODOPA
     Dosage: MD: 7.0 ML, CD: 3.6 ML/HR X 16 HR, ED: 1.6 ML/UNIT X 3 TIMES
     Route: 050
     Dates: start: 20170324, end: 20170524
  11. CARBIDOPA\LEVODOPA [Suspect]
     Active Substance: CARBIDOPA\LEVODOPA
     Dosage: MD: 7.0 ML, CD: 3.4 ML/HR X 16 HR ED: 1.6 ML/UNIT X 3 TIMES
     Route: 050
     Dates: start: 20170525, end: 20170607
  12. CARBIDOPA\LEVODOPA [Suspect]
     Active Substance: CARBIDOPA\LEVODOPA
     Dosage: MD: 7.0 ML, CD: 3.6 ML/HR X 16 HR ED: 1.6 ML/UNIT X 3 TIMES
     Route: 050
     Dates: start: 20170608, end: 20170621
  13. CARBIDOPA\LEVODOPA [Suspect]
     Active Substance: CARBIDOPA\LEVODOPA
     Dosage: MD: 7.0 ML, CD: 3.8 ML/HR X 16 HR, ED: 1.6 ML/UNIT X 3 TIMES
     Route: 050
     Dates: start: 20170622, end: 20170625
  14. CARBIDOPA\LEVODOPA [Suspect]
     Active Substance: CARBIDOPA\LEVODOPA
     Dosage: MD: 7.0 ML, CD: 3.7 ML/HR X 16 HR ED: 1.6 ML/UNIT X 3 TIMES
     Route: 050
     Dates: start: 2017
  15. CARBIDOPA\LEVODOPA [Suspect]
     Active Substance: CARBIDOPA\LEVODOPA
     Dosage: MD: 7.0 ML CD: 3.8 ML/HR X 16 HRS ED: 1.6 ML/UNIT X 3
     Route: 050
     Dates: start: 20170626, end: 20170817
  16. CARBIDOPA\LEVODOPA [Suspect]
     Active Substance: CARBIDOPA\LEVODOPA
     Dosage: MD: 7.0 ML, CD: 3.7 ML/HR X 16 HRS ,ED: 1.6 ML/UNIT X 3
     Route: 050
     Dates: start: 20170817, end: 20171130
  17. CARBIDOPA\LEVODOPA [Suspect]
     Active Substance: CARBIDOPA\LEVODOPA
     Dosage: MD: 7.0 ML?CD: 3.8 ML/HR X 16 HRS?ED: 1.6 ML/UNIT X 3
     Route: 050
     Dates: start: 20171130, end: 20171213
  18. CARBIDOPA\LEVODOPA [Suspect]
     Active Substance: CARBIDOPA\LEVODOPA
     Dosage: MD: 7.0 ML?CD: 3.9 ML/HR X 16 HRS?ED: 1.8 ML/UNIT X 3
     Route: 050
     Dates: start: 20171213
  19. CARBIDOPA\LEVODOPA [Concomitant]
     Active Substance: CARBIDOPA\LEVODOPA
     Indication: Parkinson^s disease
     Route: 048
     Dates: start: 20161222
  20. ETIZOLAM [Concomitant]
     Active Substance: ETIZOLAM
     Indication: Product used for unknown indication
     Route: 048
  21. SHIGMABITAN [Concomitant]
     Indication: Prophylaxis
     Route: 048
     Dates: start: 20161227
  22. SENNOSIDES [Concomitant]
     Active Substance: SENNOSIDES
     Indication: Product used for unknown indication
     Route: 048
  23. GLYCERIN [Concomitant]
     Active Substance: GLYCERIN
     Indication: Product used for unknown indication
     Dosage: PRN (WHEN CONSTIPATION OCCURRED)
     Route: 054
     Dates: start: 20170803

REACTIONS (22)
  - Surgery [Unknown]
  - Hospitalisation [Unknown]
  - Enteritis [Recovered/Resolved]
  - Sense of oppression [Unknown]
  - Device alarm issue [Unknown]
  - Device leakage [Unknown]
  - Device issue [Unknown]
  - Wrong technique in product usage process [Unknown]
  - Device kink [Unknown]
  - Unintentional medical device removal [Unknown]
  - Jealous delusion [Recovered/Resolved]
  - Malaise [Recovered/Resolved]
  - Malaise [Recovered/Resolved]
  - Device dislocation [Not Recovered/Not Resolved]
  - Malaise [Unknown]
  - Dyspnoea [Recovered/Resolved]
  - Malaise [Unknown]
  - Dyskinesia [Unknown]
  - Dyskinesia [Recovered/Resolved]
  - Abdominal pain [Unknown]
  - Stoma site discharge [Recovering/Resolving]
  - Dyskinesia [Unknown]

NARRATIVE: CASE EVENT DATE: 20170108
